FAERS Safety Report 18764540 (Version 1)
Quarter: 2021Q1

REPORT INFORMATION
  Report Type: Spontaneous
  Country: US (occurrence: US)
  Receive Date: 20210120
  Receipt Date: 20210120
  Transmission Date: 20210419
  Serious: No
  Sender: FDA-Public Use
  Company Number: US-GLAXOSMITHKLINE-US2021008761

PATIENT
  Age: 68 Year
  Sex: Female

DRUGS (2)
  1. ASPERCREME NOS [Concomitant]
     Active Substance: MENTHOL\TROLAMINE SALICYLATE
     Indication: PAIN
     Dosage: UNK
  2. VOLTAREN ARTHRITIS PAIN [Suspect]
     Active Substance: DICLOFENAC SODIUM
     Indication: PAIN
     Dosage: UNK
     Dates: start: 20210112, end: 20210112

REACTIONS (3)
  - Erythema [Unknown]
  - Product administered at inappropriate site [Unknown]
  - Swelling face [Unknown]

NARRATIVE: CASE EVENT DATE: 20210112
